FAERS Safety Report 14133398 (Version 2)
Quarter: 2017Q4

REPORT INFORMATION
  Report Type: Report from Study
  Country: NO (occurrence: NO)
  Receive Date: 20171027
  Receipt Date: 20171212
  Transmission Date: 20180321
  Serious: Yes (Death, Hospitalization, Other)
  Sender: FDA-Public Use
  Company Number: PHHY2016NO095160

PATIENT
  Age: 72 Year
  Sex: Female

DRUGS (9)
  1. MIDOSTAURIN [Suspect]
     Active Substance: MIDOSTAURIN
     Indication: SYSTEMIC MASTOCYTOSIS
     Dosage: 175 MG (75 MG + 100 MG), QD
     Route: 048
     Dates: start: 20130207, end: 20170109
  2. MIDOSTAURIN [Suspect]
     Active Substance: MIDOSTAURIN
     Dosage: 25 MG, QD
     Route: 048
     Dates: start: 201708, end: 20170901
  3. MIDOSTAURIN [Suspect]
     Active Substance: MIDOSTAURIN
     Dosage: 25-50, QD
     Route: 048
     Dates: start: 201704, end: 201706
  4. SPIRONOLACTON [Concomitant]
     Active Substance: SPIRONOLACTONE
     Indication: ASCITES
     Dosage: 50 MG, QD
     Route: 065
  5. SPIRONOLACTON [Concomitant]
     Active Substance: SPIRONOLACTONE
     Indication: FLUID RETENTION
  6. PANTOPRAZOL [Concomitant]
     Active Substance: PANTOPRAZOLE SODIUM
     Indication: FLUID RETENTION
     Dosage: 20 MG, QD
     Route: 065
  7. LEVAXIN [Concomitant]
     Active Substance: LEVOTHYROXINE SODIUM
     Indication: HYPOTHYROIDISM
     Dosage: 150 UG, QD (5/7)
     Route: 065
  8. LEVAXIN [Concomitant]
     Active Substance: LEVOTHYROXINE SODIUM
     Dosage: 75 UG, QD (2/7)
     Route: 065
  9. ONDANSETRON [Concomitant]
     Active Substance: ONDANSETRON
     Indication: NAUSEA
     Dosage: 8 MG, BID
     Route: 065

REACTIONS (27)
  - Asthenia [Recovered/Resolved]
  - Malaise [Not Recovered/Not Resolved]
  - Oesophageal candidiasis [Unknown]
  - Nausea [Not Recovered/Not Resolved]
  - Vomiting [Not Recovered/Not Resolved]
  - Candida infection [Unknown]
  - Dyspnoea [Unknown]
  - Viral infection [Recovered/Resolved]
  - Cholecystitis [Recovered/Resolved]
  - Hypoxia [Recovered/Resolved]
  - Respiratory syncytial virus infection [Recovered/Resolved]
  - Subdural haematoma [Unknown]
  - Death [Fatal]
  - Urinary tract infection [Recovered/Resolved]
  - Abdominal pain upper [Unknown]
  - Ascites [Unknown]
  - Drug intolerance [Unknown]
  - Fatigue [Recovered/Resolved]
  - Dyspnoea [Recovered/Resolved]
  - Eating disorder [Unknown]
  - Sepsis [Unknown]
  - Fall [Unknown]
  - Head injury [Unknown]
  - Lung infiltration [Recovered/Resolved]
  - Escherichia sepsis [Recovered/Resolved]
  - Malaise [Recovered/Resolved]
  - Klebsiella infection [Recovered/Resolved]

NARRATIVE: CASE EVENT DATE: 20151202
